FAERS Safety Report 10759144 (Version 2)
Quarter: 2019Q1

REPORT INFORMATION
  Report Type: Spontaneous
  Country: FR (occurrence: FR)
  Receive Date: 20150203
  Receipt Date: 20190301
  Transmission Date: 20190417
  Serious: Yes (Hospitalization)
  Sender: FDA-Public Use
  Company Number: FR-PFIZER INC-2015038143

PATIENT
  Age: 65 Year
  Sex: Female
  Weight: 70 kg

DRUGS (6)
  1. TOPALGIC [Concomitant]
  2. LEVOTHYROX [Concomitant]
     Active Substance: LEVOTHYROXINE
  3. LEXOMIL [Concomitant]
     Active Substance: BROMAZEPAM
     Dosage: 0.25 DF, AS NEEDED
  4. AROMASINE [Suspect]
     Active Substance: EXEMESTANE
     Indication: BREAST CANCER
     Dosage: UNK
     Route: 048
     Dates: start: 2011
  5. CRESTOR [Concomitant]
     Active Substance: ROSUVASTATIN CALCIUM
  6. LYRICA [Concomitant]
     Active Substance: PREGABALIN

REACTIONS (4)
  - Raynaud^s phenomenon [Not Recovered/Not Resolved]
  - Neuropathy peripheral [Not Recovered/Not Resolved]
  - Paraesthesia [Not Recovered/Not Resolved]
  - Hypoaesthesia [Not Recovered/Not Resolved]

NARRATIVE: CASE EVENT DATE: 2011
